FAERS Safety Report 21627003 (Version 2)
Quarter: 2024Q2

REPORT INFORMATION
  Report Type: Report from Study
  Country: US (occurrence: US)
  Receive Date: 20221122
  Receipt Date: 20240410
  Transmission Date: 20240715
  Serious: No
  Sender: FDA-Public Use
  Company Number: US-ABBVIE-22K-163-4513214-00

PATIENT
  Age: 56 Year
  Sex: Female

DRUGS (4)
  1. HUMIRA [Suspect]
     Active Substance: ADALIMUMAB
     Indication: Rheumatoid arthritis
     Dosage: CITRATE FREE
     Route: 058
  2. HUMIRA [Suspect]
     Active Substance: ADALIMUMAB
     Indication: Uveitis
     Route: 058
  3. PFIZER-BIONTECH COVID-19 VACCINE [Concomitant]
     Active Substance: TOZINAMERAN
     Indication: COVID-19 immunisation
     Dosage: FIRST DOSE?ONE IN ONCE
     Route: 030
  4. MODERNA COVID-19 VACCINE [Concomitant]
     Active Substance: ELASOMERAN
     Indication: COVID-19 immunisation
     Dosage: BOOSTER VACCINE?ONE IN ONCE
     Route: 030

REACTIONS (3)
  - COVID-19 [Recovered/Resolved]
  - Fatigue [Not Recovered/Not Resolved]
  - Temporomandibular pain and dysfunction syndrome [Not Recovered/Not Resolved]

NARRATIVE: CASE EVENT DATE: 20220801
